FAERS Safety Report 6136906-5 (Version None)
Quarter: 2009Q1

REPORT INFORMATION
  Report Type: 
  Country: None (occurrence: None)
  Receive Date: 20090326
  Receipt Date: 20090326
  Transmission Date: 20090719
  Serious: Yes (Other)
  Sender: FDA-Public Use
  Company Number: None

PATIENT
  Sex: Female
  Weight: 123 kg

DRUGS (1)
  1. LEVETIRACETAM [Suspect]
     Indication: MYOCLONIC EPILEPSY
     Dosage: 500MG ONCE EACH MORNING PO 750MG ONCE EACH EVENING PO
     Route: 048
     Dates: start: 20081204, end: 20090325

REACTIONS (2)
  - MYOCLONIC EPILEPSY [None]
  - THERAPEUTIC RESPONSE UNEXPECTED WITH DRUG SUBSTITUTION [None]
